FAERS Safety Report 4927630-2 (Version None)
Quarter: 2006Q1

REPORT INFORMATION
  Report Type: 
  Country: None (occurrence: None)
  Receive Date: 20060207
  Receipt Date: 20060123
  Transmission Date: 20060701
  Serious: Yes (Hospitalization)
  Sender: FDA-Public Use
  Company Number: 200610087BYL

PATIENT
  Sex: Female

DRUGS (4)
  1. GAMIMUNE N 5% [Suspect]
     Indication: KAWASAKI'S DISEASE
     Dosage: 2 G, TOTAL DAILY, INTRAVENOUS
     Route: 042
  2. IMMUNE GLOBULIN INTRAVENOUS (HUMAN) [Concomitant]
  3. ASPIRIN [Concomitant]
  4. BRUFEN [Concomitant]

REACTIONS (2)
  - C-REACTIVE PROTEIN INCREASED [None]
  - PYREXIA [None]
